FAERS Safety Report 9151310 (Version 1)
Quarter: 2013Q1

REPORT INFORMATION
  Report Type: Spontaneous
  Country: US (occurrence: US)
  Receive Date: 20130308
  Receipt Date: 20130308
  Transmission Date: 20140127
  Serious: No
  Sender: FDA-Public Use
  Company Number: US-GLAXOSMITHKLINE-A0977777A

PATIENT
  Age: 45 Year
  Sex: Female
  Weight: 58.6 kg

DRUGS (2)
  1. NICORETTE [Suspect]
     Indication: SMOKING CESSATION THERAPY
     Dosage: 2MG SEE DOSAGE TEXT
     Route: 002
     Dates: start: 2004
  2. NO CONCURRENT MEDICATION [Concomitant]

REACTIONS (1)
  - Nicotine dependence [Not Recovered/Not Resolved]
